FAERS Safety Report 6656884-X (Version None)
Quarter: 2010Q1

REPORT INFORMATION
  Report Type: 
  Country: None (occurrence: None)
  Receive Date: 20100329
  Receipt Date: 20100329
  Transmission Date: 20100710
  Serious: Yes (Hospitalization)
  Sender: FDA-Public Use
  Company Number: None

PATIENT
  Sex: Male
  Weight: 90.7194 kg

DRUGS (2)
  1. PEGASYS [Suspect]
     Indication: HEPATITIS C
     Dosage: 180 MCG/0.5 ML ONCE A WEEK SQ
     Route: 058
     Dates: start: 20100113, end: 20100127
  2. RIBAVIRIN [Suspect]
     Indication: HEPATITIS C
     Dosage: 600 MG BID PO
     Route: 048
     Dates: start: 20100113, end: 20100127

REACTIONS (2)
  - CARDIAC DISORDER [None]
  - HEART RATE INCREASED [None]
